FAERS Safety Report 18036979 (Version 1)
Quarter: 2020Q3

REPORT INFORMATION
  Report Type: Spontaneous
  Country: CH (occurrence: CH)
  Receive Date: 20200717
  Receipt Date: 20200717
  Transmission Date: 20201103
  Serious: Yes (Life-Threatening, Hospitalization, Other)
  Sender: FDA-Public Use
  Company Number: NVSC2020CH196477

PATIENT
  Age: 52 Year

DRUGS (29)
  1. MEROPENEM. [Suspect]
     Active Substance: MEROPENEM
     Indication: ANTIBIOTIC THERAPY
     Dosage: UNK UNK, QD (1?2 MG)
     Route: 042
     Dates: start: 20200523, end: 20200604
  2. KONAKION [Concomitant]
     Active Substance: PHYTONADIONE
     Indication: PRODUCT USED FOR UNKNOWN INDICATION
     Dosage: UNK (VARIABLE DOSE ACCORDING TO INR, ADMINISTRATION ORALLY AS WELL AS IV ON 07 MAY, 13 MAY, 16 MAY?1
     Route: 065
  3. METRONIDAZOLE. [Suspect]
     Active Substance: METRONIDAZOLE
     Dosage: 500 MG, Q8H (1?1?1)
     Route: 042
     Dates: start: 20200525, end: 20200529
  4. NOXAFIL [Suspect]
     Active Substance: POSACONAZOLE
     Indication: PRODUCT USED FOR UNKNOWN INDICATION
     Dosage: 300 MG, QD
     Route: 065
     Dates: start: 20200508, end: 20200604
  5. CEFEPIME [Concomitant]
     Active Substance: CEFEPIME HYDROCHLORIDE
     Indication: ANTIBIOTIC THERAPY
     Dosage: UNK, QD (1?2 G)
     Route: 065
     Dates: start: 20200504, end: 20200511
  6. NALOXONE [Concomitant]
     Active Substance: NALOXONE
     Indication: PRODUCT USED FOR UNKNOWN INDICATION
     Dosage: 0.4 MG UNK (UNTIL IMPROVEMENT OF SYMPTOMS)
     Route: 065
     Dates: start: 20200521, end: 20200603
  7. ZAVEDOS [Suspect]
     Active Substance: IDARUBICIN
     Indication: ACUTE MYELOID LEUKAEMIA
     Dosage: 22.5 MG, QD (1?0?0?0) (IDARUBICIN HYDROCHLORIDE: 20MG)
     Route: 042
     Dates: start: 20200508, end: 20200514
  8. CIPROFLOXACIN. [Concomitant]
     Active Substance: CIPROFLOXACIN
     Indication: ANTIBIOTIC THERAPY
     Dosage: 200 MG (1?0?1)
     Route: 042
     Dates: start: 20200519, end: 20200522
  9. HEPARIN CALCIUM [Suspect]
     Active Substance: HEPARIN CALCIUM
     Indication: PRODUCT USED FOR UNKNOWN INDICATION
     Dosage: 5000 IU, Q12H
     Route: 058
     Dates: start: 20200530, end: 20200603
  10. ACICLOVIR [Suspect]
     Active Substance: ACYCLOVIR
     Indication: PRODUCT USED FOR UNKNOWN INDICATION
     Dosage: 200 MG, Q12H
     Route: 065
     Dates: start: 20200520, end: 20200611
  11. PIPERACILLIN AND TAZOBACTAM [Concomitant]
     Active Substance: PIPERACILLIN SODIUM\TAZOBACTAM SODIUM
     Indication: ANTIBIOTIC THERAPY
     Dosage: UNK (VARIABLE DOSE ADAPTED TO RENAL FUNCTION FROM 2.25 MG 1?1?1 DAILY UP TO A TOTAL OF 9 MG PER DAY)
     Route: 042
     Dates: start: 20200519, end: 20200523
  12. KETAMINE [Concomitant]
     Active Substance: KETAMINE
     Indication: PRODUCT USED FOR UNKNOWN INDICATION
     Dosage: 250 MG
     Route: 042
     Dates: start: 20200603, end: 20200606
  13. MORPHIN [Suspect]
     Active Substance: MORPHINE
     Indication: PRODUCT USED FOR UNKNOWN INDICATION
     Dosage: UNK (VARIABLE DOSAGE, 0?20MG IN RESERVE DAILY, AS WELL AS VARIABLE FIXED MEDICATION, MAXIMUM IN TOTA
     Route: 065
     Dates: start: 20200505, end: 20200526
  14. NEXIUM [Suspect]
     Active Substance: ESOMEPRAZOLE MAGNESIUM
     Indication: PRODUCT USED FOR UNKNOWN INDICATION
     Dosage: UNK (VARIABLE DOSE OF 40?80 MG ADMINISTERED ORALLY AS WELL AS INTRAVENOUSLY)
     Route: 065
     Dates: start: 20200504, end: 20200606
  15. LORAZEPAM. [Concomitant]
     Active Substance: LORAZEPAM
     Indication: PRODUCT USED FOR UNKNOWN INDICATION
     Dosage: UNK UNK, QD (RESERVE MEDICATION 1 MG, MAXIMUM 1 MG)
     Route: 065
  16. METAMIZOLE [Concomitant]
     Active Substance: METAMIZOLE
     Indication: PRODUCT USED FOR UNKNOWN INDICATION
     Dosage: 500 MG, Q4H
     Route: 065
     Dates: start: 20200515, end: 20200606
  17. RYDAPT [Suspect]
     Active Substance: MIDOSTAURIN
     Indication: ACUTE MYELOID LEUKAEMIA
     Dosage: 50 MG, QD (1?0?0?0) (INGREDIENT MIDOSTAURIN: 25MG)
     Route: 048
     Dates: start: 20200515, end: 20200519
  18. METRONIDAZOLE. [Suspect]
     Active Substance: METRONIDAZOLE
     Indication: ANTIBIOTIC THERAPY
     Dosage: 500 MG, Q8H (1?1?1)
     Route: 048
     Dates: start: 20200515, end: 20200519
  19. CYTOSAR [Suspect]
     Active Substance: CYTARABINE
     Indication: ACUTE MYELOID LEUKAEMIA
     Dosage: 370 MG, QD (INGREDIENT CYTARABINE: 2G)
     Route: 042
     Dates: start: 20200508, end: 20200514
  20. CEFEPIME [Concomitant]
     Active Substance: CEFEPIME HYDROCHLORIDE
     Dosage: 1000 MG, QD
     Route: 065
     Dates: start: 20200515, end: 20200519
  21. VALTREX [Suspect]
     Active Substance: VALACYCLOVIR HYDROCHLORIDE
     Indication: PRODUCT USED FOR UNKNOWN INDICATION
     Dosage: 500 MG, Q12H
     Route: 065
     Dates: start: 20200508, end: 20200519
  22. PREDNISOLON [Concomitant]
     Active Substance: PREDNISOLONE
     Indication: PRODUCT USED FOR UNKNOWN INDICATION
     Dosage: 125 MG, QD
     Route: 065
     Dates: start: 20200508, end: 20200514
  23. PIPERACILLIN AND TAZOBACTAM [Concomitant]
     Active Substance: PIPERACILLIN SODIUM\TAZOBACTAM SODIUM
     Dosage: UNK
     Route: 042
     Dates: start: 20200606
  24. MIDAZOLAMUM [Concomitant]
     Active Substance: MIDAZOLAM HYDROCHLORIDE
     Indication: PRODUCT USED FOR UNKNOWN INDICATION
     Dosage: 500 MG, QD (RESERVE 0.5 MG UP TO MAX. 3 G PER DAY)
     Route: 065
     Dates: start: 20200505, end: 20200606
  25. DAPTOMYCINE [Suspect]
     Active Substance: DAPTOMYCIN
     Indication: ANTIBIOTIC THERAPY
     Dosage: 700 MG, Q48H
     Route: 042
     Dates: start: 20200523, end: 20200603
  26. LITALIR [Suspect]
     Active Substance: HYDROXYUREA
     Indication: ACUTE MYELOID LEUKAEMIA
     Dosage: 2000 MG, QD (2?0?0?0) (INGREDIENT HYDROXYCARBAMIDE: 500MG)
     Route: 048
     Dates: start: 20200504, end: 20200507
  27. PARACETAMOL [Concomitant]
     Active Substance: ACETAMINOPHEN
     Indication: PRODUCT USED FOR UNKNOWN INDICATION
     Dosage: UNK UNK, QD (VARIABLE DOSE OF 0.5?4 G DAILY)
     Route: 065
     Dates: start: 20200505, end: 20200529
  28. ONDANSETRONUM [Concomitant]
     Active Substance: ONDANSETRON
     Indication: PRODUCT USED FOR UNKNOWN INDICATION
     Dosage: UNK (VARIABLE INTAKE)
     Route: 048
     Dates: start: 20200508, end: 20200519
  29. METOCLOPRAMID [Concomitant]
     Active Substance: METOCLOPRAMIDE
     Indication: PRODUCT USED FOR UNKNOWN INDICATION
     Dosage: 10 MG, Q8H
     Route: 065
     Dates: start: 20200520, end: 20200520

REACTIONS (6)
  - Neutropenic colitis [Recovered/Resolved]
  - Intestinal haemorrhage [Recovered/Resolved]
  - Pancytopenia [Recovering/Resolving]
  - Febrile neutropenia [Recovered/Resolved]
  - Drug-induced liver injury [Recovering/Resolving]
  - Overdose [Recovered/Resolved]

NARRATIVE: CASE EVENT DATE: 20200514
